FAERS Safety Report 20675677 (Version 1)
Quarter: 2022Q2

REPORT INFORMATION
  Report Type: Spontaneous
  Country: US (occurrence: US)
  Receive Date: 20220405
  Receipt Date: 20220405
  Transmission Date: 20220721
  Serious: No
  Sender: FDA-Public Use
  Company Number: US-009507513-2203USA004810

PATIENT
  Sex: Female

DRUGS (2)
  1. PIFELTRO [Suspect]
     Active Substance: DORAVIRINE
  2. DELSTRIGO [Suspect]
     Active Substance: DORAVIRINE\LAMIVUDINE\TENOFOVIR DISOPROXIL FUMARATE

REACTIONS (1)
  - Adverse drug reaction [Unknown]
